FAERS Safety Report 6210677-6 (Version None)
Quarter: 2009Q2

REPORT INFORMATION
  Report Type: 
  Country: None (occurrence: None)
  Receive Date: 20090528
  Receipt Date: 20090528
  Transmission Date: 20091009
  Serious: Yes (Hospitalization)
  Sender: FDA-Public Use
  Company Number: None

PATIENT
  Sex: Female
  Weight: 82 kg

DRUGS (1)
  1. PROPOFOL [Suspect]
     Dosage: 100MCG/KG/MIN
     Dates: start: 20090320, end: 20090322

REACTIONS (4)
  - BLOOD TRIGLYCERIDES INCREASED [None]
  - INTRACRANIAL PRESSURE INCREASED [None]
  - NEUROLOGICAL DECOMPENSATION [None]
  - UNEVALUABLE EVENT [None]
